FAERS Safety Report 20807632 (Version 2)
Quarter: 2022Q2

REPORT INFORMATION
  Report Type: Other
  Country: JP (occurrence: JP)
  Receive Date: 20220510
  Receipt Date: 20220627
  Transmission Date: 20220721
  Serious: Yes (Other)
  Sender: FDA-Public Use
  Company Number: JP-CHUGAI-2022016727

PATIENT
  Age: 76 Year
  Sex: Male
  Weight: 51 kg

DRUGS (5)
  1. ATEZOLIZUMAB [Suspect]
     Active Substance: ATEZOLIZUMAB
     Indication: Adenosquamous cell lung cancer
     Dosage: 1200 MILLIGRAM
     Route: 041
     Dates: start: 20210513
  2. CARBOPLATIN [Suspect]
     Active Substance: CARBOPLATIN
     Indication: Adenosquamous cell lung cancer
     Dosage: 300 MILLIGRAM
     Route: 041
     Dates: start: 20210513
  3. CARBOPLATIN [Suspect]
     Active Substance: CARBOPLATIN
     Dosage: 260 MILLIGRAM
     Route: 041
  4. PACLITAXEL [Suspect]
     Active Substance: PACLITAXEL
     Indication: Adenosquamous cell lung cancer
     Dosage: 130 MILLIGRAM
     Route: 041
     Dates: start: 20210513
  5. PACLITAXEL [Suspect]
     Active Substance: PACLITAXEL
     Route: 041

REACTIONS (2)
  - Pulmonary toxicity [Recovered/Resolved]
  - Anaemia [Recovered/Resolved]

NARRATIVE: CASE EVENT DATE: 20210721
